FAERS Safety Report 14373007 (Version 1)
Quarter: 2018Q1

REPORT INFORMATION
  Report Type: Spontaneous
  Country: IT (occurrence: IT)
  Receive Date: 20180110
  Receipt Date: 20180110
  Transmission Date: 20180509
  Serious: Yes (Hospitalization)
  Sender: FDA-Public Use
  Company Number: IT-SA-2018SA004276

PATIENT
  Age: 14 Year
  Sex: Male

DRUGS (25)
  1. TACHIPIRINA [Concomitant]
     Active Substance: ACETAMINOPHEN
     Route: 065
     Dates: start: 20170523, end: 20170526
  2. ENDOXAN BAXTER [Suspect]
     Active Substance: CYCLOPHOSPHAMIDE
     Indication: ALLOGENIC BONE MARROW TRANSPLANTATION THERAPY
     Route: 042
     Dates: start: 20170523, end: 20170526
  3. URBASON [Concomitant]
     Active Substance: METHYLPREDNISOLONE
     Route: 065
     Dates: start: 20170523, end: 20170526
  4. ACICLOVIR SODIUM [Concomitant]
     Route: 042
     Dates: start: 20170527, end: 20170626
  5. URSODEOXYCHOLIC ACID [Concomitant]
     Active Substance: URSODIOL
     Route: 065
     Dates: start: 20170523, end: 20170626
  6. DIAMINOCILLINA [Concomitant]
     Active Substance: PENICILLIN G BENZATHINE
     Dosage: DOSE:1200000 M[IU] (MEGA-INTERNATIONAL UNIT)
     Route: 065
     Dates: start: 20170522
  7. HEPARIN SODIUM. [Concomitant]
     Active Substance: HEPARIN SODIUM
     Route: 042
     Dates: start: 20170523, end: 20170619
  8. TRIASPORIN [Concomitant]
     Active Substance: ITRACONAZOLE
     Route: 048
     Dates: start: 20170520, end: 20170522
  9. ZOVIRAX [Concomitant]
     Active Substance: ACYCLOVIR
     Route: 042
     Dates: start: 20170520, end: 20170522
  10. FLUCONAZOLE. [Concomitant]
     Active Substance: FLUCONAZOLE
     Route: 048
     Dates: start: 20170523, end: 20170531
  11. MYCOSTATIN [Concomitant]
     Active Substance: NYSTATIN
     Dosage: 100.000 U.I./ML SOSPENSIONE ORALE
     Route: 065
     Dates: start: 20170520, end: 20170626
  12. CLINDAMYCIN. [Concomitant]
     Active Substance: CLINDAMYCIN
     Route: 042
     Dates: start: 20170520, end: 20170617
  13. THYMOGLOBULINE [Suspect]
     Active Substance: LAPINE T-LYMPHOCYTE IMMUNE GLOBULIN
     Indication: ALLOGENIC BONE MARROW TRANSPLANTATION THERAPY
     Route: 042
     Dates: start: 20170523, end: 20170526
  14. METHOTREXATE. [Concomitant]
     Active Substance: METHOTREXATE
     Route: 065
     Dates: start: 20170530, end: 20170604
  15. CICLOSPORIN [Concomitant]
     Active Substance: CYCLOSPORINE
     Route: 065
     Dates: start: 20170527, end: 20170620
  16. FLUDARABINE PHOSPHATE. [Suspect]
     Active Substance: FLUDARABINE PHOSPHATE
     Indication: ALLOGENIC BONE MARROW TRANSPLANTATION THERAPY
     Route: 042
     Dates: start: 20170523, end: 20170526
  17. ANTRA [Concomitant]
     Active Substance: OMEPRAZOLE
     Route: 042
     Dates: start: 20170520, end: 20170529
  18. FUROSEMIDE. [Concomitant]
     Active Substance: FUROSEMIDE
     Route: 042
     Dates: start: 20170523, end: 20170626
  19. EMEND [Concomitant]
     Active Substance: APREPITANT
     Route: 065
     Dates: start: 20170523, end: 20170525
  20. UROMITEXAN [Concomitant]
     Active Substance: MESNA
     Route: 065
     Dates: start: 20170523, end: 20170526
  21. TRIMETON [Concomitant]
     Active Substance: CHLORPHENIRAMINE MALEATE
     Route: 042
     Dates: start: 20170523, end: 20170526
  22. DIFLUCAN [Concomitant]
     Active Substance: FLUCONAZOLE
     Route: 042
     Dates: start: 20170520, end: 20170522
  23. BACTRIM [Concomitant]
     Active Substance: SULFAMETHOXAZOLE\TRIMETHOPRIM
     Route: 048
     Dates: start: 20170523
  24. MERREM [Concomitant]
     Active Substance: MEROPENEM
     Route: 065
     Dates: start: 20170520, end: 20170617
  25. PALONOSETRON HYDROCHLORIDE. [Concomitant]
     Active Substance: PALONOSETRON HYDROCHLORIDE
     Route: 065
     Dates: start: 20170523

REACTIONS (4)
  - Cystitis haemorrhagic [Recovering/Resolving]
  - Pyrexia [Recovering/Resolving]
  - Haematuria [Recovering/Resolving]
  - Swelling [Recovering/Resolving]

NARRATIVE: CASE EVENT DATE: 20170602
